FAERS Safety Report 19822864 (Version 1)
Quarter: 2021Q3

REPORT INFORMATION
  Report Type: Spontaneous
  Country: US (occurrence: US)
  Receive Date: 20210913
  Receipt Date: 20210913
  Transmission Date: 20211014
  Serious: Yes (Other)
  Sender: FDA-Public Use
  Company Number: US-OCULAR THERAPEUTIX-2021OCX00036

PATIENT
  Age: 62 Year
  Sex: Female
  Weight: 121 kg

DRUGS (15)
  1. DEXTENZA [Suspect]
     Active Substance: DEXAMETHASONE
     Dosage: UNK, INSERTED THROUGH LEFT PUNCTUM
     Dates: start: 20210510
  2. WELLBUTRIN XL [Concomitant]
     Active Substance: BUPROPION HYDROCHLORIDE
  3. ALLEGRA [Concomitant]
     Active Substance: FEXOFENADINE HYDROCHLORIDE
  4. TRAZODONE [Concomitant]
     Active Substance: TRAZODONE HYDROCHLORIDE
  5. TUMS [Concomitant]
     Active Substance: CALCIUM CARBONATE
  6. KETOROLAC [Concomitant]
     Active Substance: KETOROLAC TROMETHAMINE
     Dosage: UNK, 4X/DAY FOR 2 WEEKS OR UNTIL GONE
     Route: 047
  7. INSULIN [Concomitant]
     Active Substance: INSULIN NOS
  8. NYSTATIN. [Concomitant]
     Active Substance: NYSTATIN
  9. TYLENOL [Concomitant]
     Active Substance: ACETAMINOPHEN
  10. DEXTENZA [Suspect]
     Active Substance: DEXAMETHASONE
     Indication: CATARACT OPERATION
     Dosage: UNK, INSERTED THROUGH RIGHT PUNCTUM
     Dates: start: 20210503
  11. VIGAMOX [Concomitant]
     Active Substance: MOXIFLOXACIN HYDROCHLORIDE
     Dosage: UNK, 4X/DAY FOR 2 WEEKS OR UNTIL GONE
     Route: 047
  12. BYSTOLIC [Concomitant]
     Active Substance: NEBIVOLOL HYDROCHLORIDE
  13. MULTIVIT [Concomitant]
     Active Substance: VITAMINS
  14. TRUSOPT [Concomitant]
     Active Substance: DORZOLAMIDE HYDROCHLORIDE
  15. VITAMIN B12 [Concomitant]
     Active Substance: CYANOCOBALAMIN

REACTIONS (3)
  - Anterior chamber cell [Recovering/Resolving]
  - Cystoid macular oedema [Recovering/Resolving]
  - Vision blurred [Recovering/Resolving]

NARRATIVE: CASE EVENT DATE: 202105
